FAERS Safety Report 23001783 (Version 3)
Quarter: 2023Q4

REPORT INFORMATION
  Report Type: Report from Study
  Country: GB (occurrence: GB)
  Receive Date: 20230928
  Receipt Date: 20231103
  Transmission Date: 20240110
  Serious: Yes (Other)
  Sender: FDA-Public Use
  Company Number: GB-JNJFOC-20230652878

PATIENT
  Age: 67 Year
  Sex: Male

DRUGS (2)
  1. ERLEADA [Suspect]
     Active Substance: APALUTAMIDE
     Indication: Prostate cancer
     Route: 048
     Dates: start: 20220112, end: 20231023
  2. ZOMETA [Concomitant]
     Active Substance: ZOLEDRONIC ACID
     Indication: Prophylaxis
     Route: 065

REACTIONS (3)
  - Spinal cord compression [Recovering/Resolving]
  - Prostate cancer metastatic [Unknown]
  - Bite [Recovered/Resolved]

NARRATIVE: CASE EVENT DATE: 20230601
